FAERS Safety Report 20726979 (Version 2)
Quarter: 2022Q2

REPORT INFORMATION
  Report Type: Spontaneous
  Country: US (occurrence: US)
  Receive Date: 20220419
  Receipt Date: 20220513
  Transmission Date: 20220721
  Serious: No
  Sender: FDA-Public Use
  Company Number: US-PFIZER INC-202101803300

PATIENT
  Age: 68 Year
  Sex: Female

DRUGS (1)
  1. IBRANCE [Suspect]
     Active Substance: PALBOCICLIB
     Dosage: 125 MG
     Dates: start: 20211024

REACTIONS (6)
  - Product dose omission issue [Unknown]
  - Muscle spasms [Unknown]
  - Fatigue [Unknown]
  - Weight increased [Unknown]
  - Muscle spasms [Unknown]
  - Hyperphagia [Unknown]
